FAERS Safety Report 8524753-6 (Version None)
Quarter: 2012Q3

REPORT INFORMATION
  Report Type: 
  Country: None (occurrence: None)
  Receive Date: 20120720
  Receipt Date: 20120709
  Transmission Date: 20120928
  Serious: Yes (Hospitalization, Other)
  Sender: FDA-Public Use
  Company Number: US-ELI_LILLY_AND_COMPANY-US201207003385

PATIENT
  Age: 56 Year
  Sex: Male

DRUGS (4)
  1. HUMULIN R [Suspect]
     Dosage: 0.5 ML, QD
  2. INSULIN [Concomitant]
     Dosage: UNK, UNKNOWN
  3. HUMULIN R [Suspect]
     Dosage: 0.16 ML, EACH EVENING
  4. HUMULIN R [Suspect]
     Indication: TYPE 2 DIABETES MELLITUS
     Dosage: 0.24 ML, EACH MORNING

REACTIONS (1)
  - RHABDOMYOLYSIS [None]
